FAERS Safety Report 14318468 (Version 3)
Quarter: 2018Q1

REPORT INFORMATION
  Report Type: Spontaneous
  Country: US (occurrence: US)
  Receive Date: 20171222
  Receipt Date: 20180130
  Transmission Date: 20180509
  Serious: Yes (Hospitalization)
  Sender: FDA-Public Use
  Company Number: US-VERTEX PHARMACEUTICALS-2017-007143

PATIENT
  Age: 9 Year
  Sex: Female

DRUGS (11)
  1. FLONASE                            /00908302/ [Concomitant]
     Active Substance: MOMETASONE FUROATE
  2. PULMOZYME [Suspect]
     Active Substance: DORNASE ALFA
     Indication: PRODUCT USED FOR UNKNOWN INDICATION
     Dosage: 2.5 MG, AT NIGHT VIA NEBULIZATION
     Route: 065
     Dates: start: 20171009
  3. PREVACID [Concomitant]
     Active Substance: LANSOPRAZOLE
  4. ALLEGRA [Concomitant]
     Active Substance: FEXOFENADINE HYDROCHLORIDE
  5. CULTURELLE [Concomitant]
     Active Substance: LACTOBACILLUS RHAMNOSUS
  6. HYPERSAL [Concomitant]
  7. MIRALAX [Concomitant]
     Active Substance: POLYETHYLENE GLYCOL 3350
  8. VENTOLIN [Concomitant]
     Active Substance: ALBUTEROL SULFATE
  9. VITAMIN D3 [Concomitant]
     Active Substance: CHOLECALCIFEROL
  10. PERTZYE [Concomitant]
     Active Substance: PANCRELIPASE AMYLASE\PANCRELIPASE LIPASE\PANCRELIPASE PROTEASE
  11. ORKAMBI [Suspect]
     Active Substance: IVACAFTOR\LUMACAFTOR
     Indication: CYSTIC FIBROSIS
     Dosage: 2 TABS (100/125 MG EACH), BID
     Route: 048
     Dates: start: 201711

REACTIONS (2)
  - Respiratory disorder [Unknown]
  - Infective pulmonary exacerbation of cystic fibrosis [Recovered/Resolved]

NARRATIVE: CASE EVENT DATE: 20171213
